FAERS Safety Report 9751989 (Version 1)
Quarter: 2013Q4

REPORT INFORMATION
  Report Type: Spontaneous
  Country: US (occurrence: None)
  Receive Date: 20131211
  Receipt Date: 20131211
  Transmission Date: 20140711
  Serious: Yes (Hospitalization)
  Sender: FDA-Public Use
  Company Number: None

PATIENT
  Age: 48 Year
  Sex: Male
  Weight: 84.7 kg

DRUGS (1)
  1. STRIBILD [Suspect]
     Indication: HIV INFECTION
     Dosage: 1 TABLET
     Route: 048
     Dates: start: 20131004, end: 20131113

REACTIONS (14)
  - Fatigue [None]
  - Muscle spasms [None]
  - Night sweats [None]
  - Renal failure acute [None]
  - Genital herpes [None]
  - Staphylococcus test positive [None]
  - Headache [None]
  - Chest pain [None]
  - Influenza like illness [None]
  - Fluid intake reduced [None]
  - Rhabdomyolysis [None]
  - Viral myositis [None]
  - Anaemia [None]
  - Haemolysis [None]
